FAERS Safety Report 4512975-0 (Version None)
Quarter: 2004Q4

REPORT INFORMATION
  Report Type: 
  Country: None (occurrence: None)
  Receive Date: 20041124
  Receipt Date: 20041115
  Transmission Date: 20050328
  Serious: Yes (Death)
  Sender: FDA-Public Use
  Company Number: F01200403627

PATIENT
  Age: 62 Year
  Sex: Male
  Weight: 76.3 kg

DRUGS (21)
  1. OXALIPLATIN - SOLUTION - 130 MG/M2 [Suspect]
     Indication: NON-SMALL CELL LUNG CANCER
     Dosage: 130 MG/M2 Q3W  - INTRAVENOUS NOS
     Route: 042
     Dates: start: 20041102, end: 20041102
  2. GEMCITABINE - SOLUTION 1000 MG/M2 [Suspect]
     Dosage: 1000 MG/M2 Q3W INTRAVENOUS NOS
     Route: 042
     Dates: start: 20041102, end: 20041102
  3. SIMVASTATIN [Concomitant]
  4. GEMFIBROZIL [Concomitant]
  5. LISINOPRIL [Concomitant]
  6. ACETYLSALICYLIC ACID [Concomitant]
  7. OXYCODONE HCL/ACETAMINOPHEN [Concomitant]
  8. VITAMIN A [Concomitant]
  9. VITAMIN E [Concomitant]
  10. VITAMIN C [Concomitant]
  11. CALCIUM GLUCONATE [Concomitant]
  12. MAGNESIUM SULFATE [Concomitant]
  13. DEXAMETHASONE [Concomitant]
  14. DOLASETRON MESILATE [Concomitant]
  15. GRANISETRON [Concomitant]
  16. ONDANSETRON HCL [Concomitant]
  17. PROMETHAZINE HCL [Concomitant]
  18. ALBUTEROL SULFATE [Concomitant]
  19. LOPERAMIDE HCL [Concomitant]
  20. GRANISETRON [Concomitant]
  21. FENTANYL [Concomitant]

REACTIONS (5)
  - DISEASE PROGRESSION [None]
  - FALL [None]
  - HAEMOPTYSIS [None]
  - HEAD INJURY [None]
  - REFUSAL OF TREATMENT BY PATIENT [None]
